FAERS Safety Report 19673137 (Version 1)
Quarter: 2021Q3

REPORT INFORMATION
  Report Type: Spontaneous
  Country: US (occurrence: US)
  Receive Date: 20210809
  Receipt Date: 20210809
  Transmission Date: 20211014
  Serious: Yes (Other)
  Sender: FDA-Public Use
  Company Number: US-ACCORD-152315

PATIENT
  Age: 48 Year
  Sex: Female
  Weight: 81.65 kg

DRUGS (9)
  1. ATORVASTATIN [Concomitant]
     Active Substance: ATORVASTATIN
     Dates: start: 20130423, end: 20140424
  2. PREGABALIN. [Concomitant]
     Active Substance: PREGABALIN
     Dates: start: 20140314, end: 20140413
  3. BUPROPION/BUPROPION HYDROCHLORIDE [Concomitant]
     Active Substance: BUPROPION HYDROCHLORIDE
     Dates: start: 20130618, end: 20140619
  4. CYTOXAN [Suspect]
     Active Substance: CYCLOPHOSPHAMIDE
     Indication: BREAST CANCER STAGE II
     Dates: start: 20140130, end: 20140430
  5. CHLORZOXAZONE. [Concomitant]
     Active Substance: CHLORZOXAZONE
  6. NEOSTIGMINE. [Concomitant]
     Active Substance: NEOSTIGMINE METHYLSULFATE
     Dates: start: 20130617, end: 20140618
  7. CYTOXAN [Suspect]
     Active Substance: CYCLOPHOSPHAMIDE
     Indication: BREAST CANCER STAGE II
     Dates: start: 20140130, end: 20140430
  8. WELLBUTRIN [Concomitant]
     Active Substance: BUPROPION HYDROCHLORIDE
  9. DOCETAXEL ACCORD [Suspect]
     Active Substance: DOCETAXEL
     Indication: BREAST CANCER STAGE II
     Dosage: 142MG IN 500ML NS FOR 1 HR
     Dates: start: 20140130, end: 20140430

REACTIONS (1)
  - Alopecia [Not Recovered/Not Resolved]
